FAERS Safety Report 16047736 (Version 1)
Quarter: 2019Q1

REPORT INFORMATION
  Report Type: Spontaneous
  Country: FR (occurrence: FR)
  Receive Date: 20190307
  Receipt Date: 20190307
  Transmission Date: 20190418
  Serious: Yes (Other)
  Sender: FDA-Public Use
  Company Number: FR-PFIZER INC-2019093214

PATIENT
  Age: 67 Year
  Sex: Male
  Weight: 83.5 kg

DRUGS (4)
  1. CYTARABINE. [Suspect]
     Active Substance: CYTARABINE
     Indication: ACUTE MYELOID LEUKAEMIA
     Dosage: 40 MG, UNK
     Route: 037
     Dates: start: 20181224, end: 20181224
  2. CYTARABINE. [Suspect]
     Active Substance: CYTARABINE
     Dosage: 300 MG, ALTERNATE DAY (DAY1, DAY3 AND DAY5)
     Route: 042
     Dates: start: 20190103, end: 20190107
  3. METHOTREXATE SODIUM. [Suspect]
     Active Substance: METHOTREXATE SODIUM
     Indication: ACUTE MYELOID LEUKAEMIA
     Dosage: 15 MG, UNK
     Route: 037
     Dates: start: 20181224, end: 20181224
  4. METHYLPREDNISOLONE. [Suspect]
     Active Substance: METHYLPREDNISOLONE
     Indication: ACUTE MYELOID LEUKAEMIA
     Dosage: 40 MG, UNK
     Route: 037
     Dates: start: 20181224, end: 20181224

REACTIONS (2)
  - Demyelinating polyneuropathy [Not Recovered/Not Resolved]
  - Dysaesthesia [Not Recovered/Not Resolved]

NARRATIVE: CASE EVENT DATE: 20190107
